FAERS Safety Report 7707925-X (Version None)
Quarter: 2011Q3

REPORT INFORMATION
  Report Type: 
  Country: None (occurrence: None)
  Receive Date: 20110824
  Receipt Date: 20110815
  Transmission Date: 20111222
  Serious: Yes (Hospitalization)
  Sender: FDA-Public Use
  Company Number: US-ASTRAZENECA-2011SE44763

PATIENT
  Age: 64 Year
  Sex: Female

DRUGS (1)
  1. NEXIUM [Suspect]
     Dosage: TWO TIMES A DAY
     Route: 048

REACTIONS (4)
  - CHEST PAIN [None]
  - OROPHARYNGEAL PAIN [None]
  - PNEUMONIA [None]
  - INCORRECT DOSE ADMINISTERED [None]
